FAERS Safety Report 21141016 (Version 1)
Quarter: 2022Q3

REPORT INFORMATION
  Report Type: Spontaneous
  Country: JP (occurrence: JP)
  Receive Date: 20220728
  Receipt Date: 20220728
  Transmission Date: 20221026
  Serious: Yes (Other)
  Sender: FDA-Public Use
  Company Number: JP-JNJFOC-20220753832

PATIENT
  Sex: Female

DRUGS (2)
  1. INVEGA [Suspect]
     Active Substance: PALIPERIDONE
     Indication: Product used for unknown indication
     Route: 048
     Dates: start: 2016, end: 202202
  2. INVEGA [Suspect]
     Active Substance: PALIPERIDONE
     Indication: Product used for unknown indication
     Route: 048
     Dates: start: 202202

REACTIONS (4)
  - Hepatic cirrhosis [Unknown]
  - Tremor [Recovering/Resolving]
  - Amnesia [Unknown]
  - Anger [Unknown]

NARRATIVE: CASE EVENT DATE: 20220201
